FAERS Safety Report 9100049 (Version 2)
Quarter: 2013Q3

REPORT INFORMATION
  Report Type: Report from Study
  Country: BR (occurrence: BR)
  Receive Date: 20130215
  Receipt Date: 20130828
  Transmission Date: 20140515
  Serious: Yes (Other)
  Sender: FDA-Public Use
  Company Number: BR-ABBOTT-13P-020-1049234-00

PATIENT
  Age: 41 Year
  Sex: Female
  Weight: 74 kg

DRUGS (5)
  1. HUMIRA [Suspect]
     Indication: RHEUMATOID ARTHRITIS
     Route: 058
     Dates: start: 20120913, end: 201212
  2. HUMIRA [Suspect]
     Route: 058
     Dates: end: 20130626
  3. METHOTREXATE [Concomitant]
     Indication: RHEUMATOID ARTHRITIS
     Route: 048
     Dates: start: 2012
  4. NIMESULIDE [Concomitant]
     Indication: PAIN
     Dosage: 2 TABLETS PER DAY AS NEEDED
     Route: 047
     Dates: start: 201208
  5. PROFLAM [Concomitant]
     Indication: ANTIINFLAMMATORY THERAPY
     Route: 048
     Dates: start: 201306

REACTIONS (12)
  - Abasia [Unknown]
  - Joint swelling [Recovering/Resolving]
  - Local swelling [Recovering/Resolving]
  - Arthritis [Recovering/Resolving]
  - Tendon rupture [Recovering/Resolving]
  - Ligament rupture [Recovering/Resolving]
  - Meniscus injury [Recovering/Resolving]
  - Cyst [Recovering/Resolving]
  - Influenza [Recovered/Resolved]
  - Arthropathy [Not Recovered/Not Resolved]
  - Arthralgia [Unknown]
  - Gait disturbance [Unknown]
